FAERS Safety Report 5875643-9 (Version None)
Quarter: 2008Q3

REPORT INFORMATION
  Report Type: 
  Country: None (occurrence: None)
  Receive Date: 20080905
  Receipt Date: 20080827
  Transmission Date: 20090109
  Serious: Yes (Death)
  Sender: FDA-Public Use
  Company Number: 2008AL009926

PATIENT
  Age: 67 Year
  Sex: Male

DRUGS (1)
  1. DIGOXIN [Suspect]

REACTIONS (3)
  - ASPIRATION [None]
  - DYSPHAGIA [None]
  - PHARYNGEAL CANCER METASTATIC [None]
